FAERS Safety Report 5000383-8 (Version None)
Quarter: 2006Q2

REPORT INFORMATION
  Report Type: 
  Country: None (occurrence: None)
  Receive Date: 20060511
  Receipt Date: 20060110
  Transmission Date: 20061013
  Serious: Yes (Hospitalization)
  Sender: FDA-Public Use
  Company Number: FR-MERCK-0601FRA00045

PATIENT
  Age: 17 Year
  Sex: Female

DRUGS (3)
  1. PRIMAXIN [Suspect]
     Indication: SEPSIS
     Route: 042
     Dates: start: 20051027
  2. VORICONAZOLE [Suspect]
     Indication: SEPSIS
     Route: 042
     Dates: start: 20051108, end: 20051113
  3. VANCOMYCIN [Concomitant]
     Indication: LIVER ABSCESS
     Route: 042
     Dates: start: 20051108

REACTIONS (3)
  - ABNORMAL BEHAVIOUR [None]
  - DELIRIUM [None]
  - HALLUCINATION, VISUAL [None]
